FAERS Safety Report 5486161-4 (Version None)
Quarter: 2007Q4

REPORT INFORMATION
  Report Type: 
  Country: None (occurrence: None)
  Receive Date: 20071015
  Receipt Date: 20071004
  Transmission Date: 20080405
  Serious: Yes (Other)
  Sender: FDA-Public Use
  Company Number: US-PFIZER INC-2007073972

PATIENT
  Sex: Male
  Weight: 88.5 kg

DRUGS (14)
  1. CHANTIX [Suspect]
     Indication: SMOKING CESSATION THERAPY
     Route: 048
  2. LANOXIN [Concomitant]
  3. SYNTHROID [Concomitant]
  4. GLUCOTROL XL [Concomitant]
  5. BUMEX [Concomitant]
  6. ALL OTHER THERAPEUTIC PRODUCTS [Concomitant]
  7. LISINOPRIL [Concomitant]
  8. COREG [Concomitant]
  9. HALCION [Concomitant]
  10. VALIUM [Concomitant]
  11. CIALIS [Concomitant]
  12. ACETYLSALICYLIC ACID [Concomitant]
  13. ELAVIL [Concomitant]
  14. KLOR-CON [Concomitant]

REACTIONS (4)
  - BODY HEIGHT DECREASED [None]
  - NON-SMALL CELL LUNG CANCER [None]
  - PRURITUS [None]
  - RASH [None]
